FAERS Safety Report 7471907-6 (Version None)
Quarter: 2011Q2

REPORT INFORMATION
  Report Type: 
  Country: None (occurrence: None)
  Receive Date: 20110511
  Receipt Date: 20100709
  Transmission Date: 20111010
  Serious: No
  Sender: FDA-Public Use
  Company Number: A0869509A

PATIENT
  Age: 56 Year
  Sex: Female

DRUGS (4)
  1. XANAX [Concomitant]
  2. TYKERB [Suspect]
     Indication: BREAST CANCER
     Dosage: 5TAB PER DAY
     Route: 048
     Dates: start: 20100501
  3. LORTAB [Concomitant]
  4. XELODA [Concomitant]

REACTIONS (3)
  - NAUSEA [None]
  - DYSPNOEA [None]
  - NODULE [None]
